FAERS Safety Report 10248938 (Version 3)
Quarter: 2014Q3

REPORT INFORMATION
  Report Type: Report from Study
  Country: GB (occurrence: None)
  Receive Date: 20140618
  Receipt Date: 20140708
  Transmission Date: 20150326
  Serious: Yes (Congenital Anomaly, Other)
  Sender: FDA-Public Use
  Company Number: AUR-APL-2014-06406

PATIENT
  Age: 1 Day
  Sex: Male
  Weight: 3.1 kg

DRUGS (6)
  1. TENOFOVIR DISOPROXIL FUMARATE [Suspect]
     Active Substance: TENOFOVIR DISOPROXIL FUMARATE
     Indication: ANTIRETROVIRAL THERAPY
     Dosage: UNK, TRANSPLACENTAL
     Route: 064
     Dates: start: 20100610
  2. NEVIRAPINE. [Suspect]
     Active Substance: NEVIRAPINE
     Indication: ANTIRETROVIRAL THERAPY
     Dosage: 400 MG, ONCE A DAY,TRANSPLACENTAL
     Route: 064
     Dates: start: 20090101, end: 20100610
  3. ZIDOVUDINE. [Suspect]
     Active Substance: ZIDOVUDINE
     Indication: ANTIRETROVIRAL THERAPY
     Dosage: 600 MG, ONCE A DAY, TRANSPLACENTAL
     Route: 064
     Dates: start: 20090101, end: 20100610
  4. LAMIVUDINE. [Suspect]
     Active Substance: LAMIVUDINE
     Indication: ANTIRETROVIRAL THERAPY
     Dosage: 300 MG, ONCE A DAY, TRANSPLACENTAL
     Route: 064
     Dates: start: 20090101, end: 20100610
  5. ISENTRESS [Suspect]
     Active Substance: RALTEGRAVIR POTASSIUM
     Indication: HIV INFECTION
     Dosage: 800 MG, DAILY, TRANSPLACENTAL ?
     Route: 064
     Dates: start: 20100610
  6. KALETRA [Suspect]
     Active Substance: LOPINAVIR\RITONAVIR
     Indication: ANTIRETROVIRAL THERAPY
     Dosage: UNK, TRANSPLACENTAL
     Route: 064
     Dates: start: 20100610

REACTIONS (3)
  - Maternal drugs affecting foetus [None]
  - Volvulus [None]
  - Foetal exposure during pregnancy [None]
